FAERS Safety Report 25064251 (Version 1)
Quarter: 2025Q1

REPORT INFORMATION
  Report Type: Spontaneous
  Country: US (occurrence: None)
  Receive Date: 20250311
  Receipt Date: 20250311
  Transmission Date: 20250409
  Serious: Yes (Other)
  Sender: FDA-CTU
  Company Number: None

PATIENT
  Age: 69 Year
  Sex: Female
  Weight: 99 kg

DRUGS (1)
  1. HYDROCHLOROTHIAZIDE [Suspect]
     Active Substance: HYDROCHLOROTHIAZIDE
     Indication: Hypertension
     Dosage: FREQUENCY : DAILY;?
     Route: 048

REACTIONS (11)
  - Cough [None]
  - Choking sensation [None]
  - Secretion discharge [None]
  - Gastrooesophageal reflux disease [None]
  - Asthma [None]
  - Multiple allergies [None]
  - Fatigue [None]
  - Nausea [None]
  - Brain fog [None]
  - Dizziness [None]
  - Blood sodium decreased [None]

NARRATIVE: CASE EVENT DATE: 20250226
